FAERS Safety Report 24293976 (Version 1)
Quarter: 2024Q3

REPORT INFORMATION
  Report Type: Report from Study
  Country: ZA (occurrence: None)
  Receive Date: 20240906
  Receipt Date: 20240906
  Transmission Date: 20241016
  Serious: Yes (Hospitalization)
  Sender: ASTRAZENECA
  Company Number: 2024A197512

PATIENT
  Age: 33603 Day
  Sex: Female

DRUGS (8)
  1. DAPAGLIFLOZIN PROPANEDIOL [Suspect]
     Active Substance: DAPAGLIFLOZIN PROPANEDIOL
     Indication: Diabetes mellitus
     Route: 048
  2. AMLODIPINE BESYLATE [Concomitant]
     Active Substance: AMLODIPINE BESYLATE
     Indication: Hypertension
  3. OMEPRAZOLE [Concomitant]
     Active Substance: OMEPRAZOLE
     Indication: Ulcer
  4. FUROSEMIDE [Concomitant]
     Active Substance: FUROSEMIDE
     Indication: Hypertension
  5. CARVEDILOL [Concomitant]
     Active Substance: CARVEDILOL
     Indication: Hypertension
  6. SPIRACTIN [Concomitant]
     Indication: Hypertension
  7. RISPERIDONE [Concomitant]
     Active Substance: RISPERIDONE
     Indication: Psychiatric investigation
  8. THIAMINE [Concomitant]
     Active Substance: THIAMINE

REACTIONS (4)
  - Gastric infection [Unknown]
  - Feeding disorder [Unknown]
  - Pain [Unknown]
  - Gastroenteritis viral [Unknown]
